FAERS Safety Report 6380546-X (Version None)
Quarter: 2009Q3

REPORT INFORMATION
  Report Type: 
  Country: None (occurrence: None)
  Receive Date: 20090924
  Receipt Date: 20090914
  Transmission Date: 20100115
  Serious: Yes (Hospitalization)
  Sender: FDA-Public Use
  Company Number: 2009AL004423

PATIENT
  Age: 66 Year
  Sex: Male
  Weight: 72.5755 kg

DRUGS (39)
  1. DIGOXIN [Suspect]
     Dosage: PO
     Route: 048
  2. TOPROL-XL [Concomitant]
  3. HYDROCHLOROTHIAZIDE [Concomitant]
  4. PERCOCET [Concomitant]
  5. BENADRYL [Concomitant]
  6. OXYCONTIN [Concomitant]
  7. SURFAK [Concomitant]
  8. ASPIRIN [Concomitant]
  9. INDOCIN [Concomitant]
  10. PREDNISONE [Concomitant]
  11. NORVASC [Concomitant]
  12. OS-CAL [Concomitant]
  13. COLCHICINE [Concomitant]
  14. PROTONIX [Concomitant]
  15. MULTI-VITAMIN [Concomitant]
  16. GUAIFENEX [Concomitant]
  17. DESONIDE [Concomitant]
  18. TRIAMZIDE [Concomitant]
  19. CEPHALEXIN [Concomitant]
  20. CYANOCORAX [Concomitant]
  21. NYSTATIN [Concomitant]
  22. DYAZIDE [Concomitant]
  23. PROPOXYPHENE HCL CAP [Concomitant]
  24. HCODON/APAP [Concomitant]
  25. NEXIUM [Concomitant]
  26. TRIAMCINOLONE [Concomitant]
  27. SULFASALAZINE [Concomitant]
  28. LEVAQUIN [Concomitant]
  29. CEPHADROXIL [Concomitant]
  30. FENTANYL-100 [Concomitant]
  31. OXYCODONE HCL AND ACETAMINOPHEN [Concomitant]
  32. COTRIM [Concomitant]
  33. FEXOFENADIN [Concomitant]
  34. METHOTREXATE [Concomitant]
  35. FOLIC ACID [Concomitant]
  36. TESTOSTERONE [Concomitant]
  37. FUROSEMIDE [Concomitant]
  38. PLAVIX [Concomitant]
  39. LISINOPRIL [Concomitant]

REACTIONS (15)
  - ARTHRALGIA [None]
  - BACK PAIN [None]
  - CHILLS [None]
  - CLOSTRIDIUM DIFFICILE COLITIS [None]
  - ESSENTIAL HYPERTENSION [None]
  - HIP ARTHROPLASTY [None]
  - ISCHAEMIC CARDIOMYOPATHY [None]
  - JOINT RANGE OF MOTION DECREASED [None]
  - MYOCARDIAL INFARCTION [None]
  - OEDEMA PERIPHERAL [None]
  - PERIPHERAL VASCULAR DISORDER [None]
  - PNEUMONIA [None]
  - RENAL FAILURE [None]
  - URINARY TRACT INFECTION [None]
  - VENTRICULAR TACHYCARDIA [None]
